FAERS Safety Report 12697480 (Version 1)
Quarter: 2016Q3

REPORT INFORMATION
  Report Type: Spontaneous
  Country: US (occurrence: None)
  Receive Date: 20160829
  Receipt Date: 20160829
  Transmission Date: 20161109
  Serious: No
  Sender: FDA-Public Use
  Company Number: None

PATIENT
  Age: 51 Year
  Sex: Female
  Weight: 56.7 kg

DRUGS (10)
  1. GUAIFENSESIN/PSEUDOEPHEDRINE [Concomitant]
  2. ACETAMINOPHEN. [Concomitant]
     Active Substance: ACETAMINOPHEN
  3. BUPROPION SR [Concomitant]
     Active Substance: BUPROPION
  4. VITAMIN D [Concomitant]
     Active Substance: CHOLECALCIFEROL
  5. CELEXA EQ [Concomitant]
  6. ZYRTEC EQ [Concomitant]
  7. TOPROL XL [Concomitant]
     Active Substance: METOPROLOL SUCCINATE
  8. TRICOR [Suspect]
     Active Substance: FENOFIBRATE
     Indication: LOW DENSITY LIPOPROTEIN INCREASED
     Route: 048
     Dates: start: 20160820, end: 20160821
  9. ZOLPIDEM CR [Concomitant]
     Active Substance: ZOLPIDEM TARTRATE
  10. CELEBREX EQ [Concomitant]

REACTIONS (2)
  - Condition aggravated [None]
  - Hot flush [None]

NARRATIVE: CASE EVENT DATE: 20160821
